FAERS Safety Report 9922167 (Version 1)
Quarter: 2014Q1

REPORT INFORMATION
  Report Type: Spontaneous
  Country: FR (occurrence: FR)
  Receive Date: 20140225
  Receipt Date: 20140225
  Transmission Date: 20141002
  Serious: Yes (Life-Threatening)
  Sender: FDA-Public Use
  Company Number: FR-PFIZER INC-2014051914

PATIENT
  Age: 90 Year
  Sex: Female

DRUGS (5)
  1. LYRICA [Suspect]
     Indication: POST HERPETIC NEURALGIA
     Dosage: UNK
     Route: 048
     Dates: start: 20131203, end: 20131220
  2. VERSATIS [Suspect]
     Indication: POST HERPETIC NEURALGIA
     Dosage: UNK
     Route: 062
     Dates: start: 20131211, end: 20131220
  3. VALACICLOVIR [Concomitant]
     Dosage: UNK
     Dates: start: 20131202, end: 20131208
  4. CIPROFLOXACIN [Concomitant]
     Dosage: UNK
     Dates: start: 20131202, end: 20131208
  5. OFLOXACIN [Concomitant]
     Indication: SUPERINFECTION
     Dosage: UNK
     Route: 001
     Dates: start: 20131202, end: 20131216

REACTIONS (5)
  - Hypokalaemia [Recovered/Resolved]
  - Electrocardiogram QRS complex prolonged [Recovered/Resolved]
  - Nausea [Unknown]
  - Decreased appetite [Unknown]
  - Vomiting [Unknown]
